FAERS Safety Report 11490767 (Version 2)
Quarter: 2015Q3

REPORT INFORMATION
  Report Type: Spontaneous
  Country: JP (occurrence: JP)
  Receive Date: 20150910
  Receipt Date: 20150916
  Transmission Date: 20151125
  Serious: Yes (Other)
  Sender: FDA-Public Use
  Company Number: JP-ASTRAZENECA-2015SE86816

PATIENT

DRUGS (3)
  1. ACLACINON [Concomitant]
     Active Substance: ACLARUBICIN HYDROCHLORIDE
     Indication: LEUKAEMIA
     Dosage: DOSE UNKNOWN
     Route: 065
  2. IRESSA [Suspect]
     Active Substance: GEFITINIB
     Indication: LUNG NEOPLASM MALIGNANT
     Route: 048
  3. CYLOCIDE [Concomitant]
     Active Substance: CYTARABINE
     Indication: LEUKAEMIA
     Dosage: DOSE UNKNOWN
     Route: 065

REACTIONS (1)
  - Leukaemia recurrent [Unknown]
